FAERS Safety Report 13010174 (Version 2)
Quarter: 2016Q4

REPORT INFORMATION
  Report Type: Spontaneous
  Country: BR (occurrence: BR)
  Receive Date: 20161201
  Receipt Date: 20161201
  Transmission Date: 20170207
  Serious: Yes (Hospitalization)
  Sender: FDA-Public Use
  Company Number: BR-TORRENT-00003713

PATIENT
  Age: 86 Year
  Sex: Female
  Weight: 60 kg

DRUGS (5)
  1. EPZ [Suspect]
     Active Substance: DONEPEZIL HYDROCHLORIDE
     Indication: DEMENTIA ALZHEIMER^S TYPE
     Dosage: ONE TABLET DAILY/ ORAL
     Route: 048
     Dates: start: 201610, end: 20161030
  2. MEMANTINE. [Concomitant]
     Active Substance: MEMANTINE
     Indication: DEMENTIA ALZHEIMER^S TYPE
     Dosage: ONE TABLET DAILY/ ORAL
     Route: 048
     Dates: start: 201610
  3. SIMVASTATIN. [Concomitant]
     Active Substance: SIMVASTATIN
     Indication: PRODUCT USED FOR UNKNOWN INDICATION
     Dosage: UNK/ ORAL
     Route: 048
     Dates: end: 201610
  4. VASCER [Concomitant]
     Indication: DEMENTIA ALZHEIMER^S TYPE
     Dosage: ONE TABLET DAILY/ ORAL
     Route: 048
     Dates: start: 2015
  5. HYDROCHLOROTHIAZIDE. [Concomitant]
     Active Substance: HYDROCHLOROTHIAZIDE
     Indication: PRODUCT USED FOR UNKNOWN INDICATION
     Dosage: UNK/ ORAL
     Route: 048
     Dates: end: 201610

REACTIONS (5)
  - Blood pressure increased [Unknown]
  - Weight decreased [Unknown]
  - Blood sodium decreased [Unknown]
  - Urinary tract infection [Unknown]
  - Hypovitaminosis [Unknown]

NARRATIVE: CASE EVENT DATE: 201610
